FAERS Safety Report 17016577 (Version 2)
Quarter: 2019Q4

REPORT INFORMATION
  Report Type: Spontaneous
  Country: US (occurrence: US)
  Receive Date: 20191111
  Receipt Date: 20191127
  Transmission Date: 20200122
  Serious: No
  Sender: FDA-Public Use
  Company Number: US-PFIZER INC-2019487928

PATIENT
  Age: 60 Year
  Sex: Male

DRUGS (1)
  1. SUTENT [Suspect]
     Active Substance: SUNITINIB MALATE
     Indication: RENAL CANCER
     Dosage: 25 MG, CYCLIC (1 TABLET TWICE DAILY) FOR 4 WEEKS ON AND 2 WEEKS OFF)
     Route: 048
     Dates: start: 20191023, end: 20191115

REACTIONS (5)
  - Periorbital swelling [Unknown]
  - Pallor [Unknown]
  - Peripheral swelling [Recovering/Resolving]
  - Lip dry [Unknown]
  - Thirst [Unknown]

NARRATIVE: CASE EVENT DATE: 2019
